FAERS Safety Report 25977275 (Version 2)
Quarter: 2025Q4

REPORT INFORMATION
  Report Type: Spontaneous
  Country: UA (occurrence: UA)
  Receive Date: 20251030
  Receipt Date: 20251113
  Transmission Date: 20260117
  Serious: Yes (Death)
  Sender: MIRUM PHARMACEUTICALS
  Company Number: UA-MIRUM PHARMACEUTICALS, INC.-UA-MIR-25-00797

PATIENT

DRUGS (42)
  1. LIVMARLI [Suspect]
     Active Substance: MARALIXIBAT CHLORIDE
     Indication: Alagille syndrome
     Dosage: FIRST WEEK 1,9 MG ORAL
     Route: 048
     Dates: start: 20231212, end: 202312
  2. LIVMARLI [Suspect]
     Active Substance: MARALIXIBAT CHLORIDE
     Dosage: ALL THE FOLLOWING DAYS 3,8 MG ORAL
     Route: 048
     Dates: start: 202312, end: 20240612
  3. HUMAN RED BLOOD CELL [Concomitant]
     Active Substance: HUMAN RED BLOOD CELL
     Indication: Transfusion
     Dosage: TRANSFUSION OF 240 ML OF O (I) RH POSITIVE SFP
     Route: 042
     Dates: start: 20250902
  4. HUMAN RED BLOOD CELL [Concomitant]
     Active Substance: HUMAN RED BLOOD CELL
     Dosage: HEMOTRANSFUSION OF ERYTHROCYTE MASS O(I) RHESUS POS
     Route: 042
     Dates: start: 20250902
  5. HUMAN RED BLOOD CELL [Concomitant]
     Active Substance: HUMAN RED BLOOD CELL
     Dosage: BLOOD TRANSFUSION WAS PERFORMED SZP O(I) RHESUS POS
     Route: 042
     Dates: start: 20250908
  6. HUMAN RED BLOOD CELL [Concomitant]
     Active Substance: HUMAN RED BLOOD CELL
     Dosage: HEMOTRANSFUSION OF ERYTHROCYTE MASS O(I) RHESUS POS. 120 ML
     Route: 042
     Dates: start: 20250909
  7. HUMAN RED BLOOD CELL [Concomitant]
     Active Substance: HUMAN RED BLOOD CELL
     Dosage: HEMOTRANSFUSION OF ERYTHROCYTE MASS O(I) RHESUS POS. 170 ML
     Route: 042
     Dates: start: 20250910
  8. HUMAN RED BLOOD CELL [Concomitant]
     Active Substance: HUMAN RED BLOOD CELL
     Dosage: HEMOTRANSFUSION OF SZP O(I) RHESUS POS. 120 ML
     Route: 042
     Dates: start: 20250911
  9. HUMAN RED BLOOD CELL [Concomitant]
     Active Substance: HUMAN RED BLOOD CELL
     Dosage: HEMOTRANSFUSION OF SFP O(I) RHESUS POS. 120 ML
     Route: 042
     Dates: start: 20250912
  10. HUMAN RED BLOOD CELL [Concomitant]
     Active Substance: HUMAN RED BLOOD CELL
     Dosage: HEMOTRANSFUSION OF SFP O(I) RHESUS POS. 120 ML
     Route: 042
     Dates: start: 20250913
  11. HUMAN RED BLOOD CELL [Concomitant]
     Active Substance: HUMAN RED BLOOD CELL
     Dosage: HEMOTRANSFUSION OF SFP O(I) RHESUS POS. 120 ML
     Route: 042
     Dates: start: 20250914
  12. HUMAN RED BLOOD CELL [Concomitant]
     Active Substance: HUMAN RED BLOOD CELL
     Dosage: HEMOTRANSFUSION OF SFP O(I) RHESUS POS. 120 ML
     Route: 042
     Dates: start: 20250915
  13. HUMAN RED BLOOD CELL [Concomitant]
     Active Substance: HUMAN RED BLOOD CELL
     Dosage: HEMOTRANSFUSION OF SFP O(I) RHESUS POS. 120 ML
     Route: 042
     Dates: start: 20250916
  14. HUMAN RED BLOOD CELL [Concomitant]
     Active Substance: HUMAN RED BLOOD CELL
     Dosage: HEMOTRANSFUSION OF SFP O(I) RHESUS POS. 120 ML
     Route: 042
     Dates: start: 20250917
  15. HUMAN RED BLOOD CELL [Concomitant]
     Active Substance: HUMAN RED BLOOD CELL
     Dosage: HEMOTRANSFUSION OF SFP O(I) RHESUS POS. 120 ML
     Route: 042
     Dates: start: 20250918
  16. HUMAN RED BLOOD CELL [Concomitant]
     Active Substance: HUMAN RED BLOOD CELL
     Dosage: UNKBLOOD TRANSFUSION OF SZP O(I) RHESUS POS. 120 ML
     Route: 042
     Dates: start: 20250919
  17. HUMAN RED BLOOD CELL [Concomitant]
     Active Substance: HUMAN RED BLOOD CELL
     Dosage: BLOOD TRANSFUSION OF SZP O(I) RHESUS POS. 120 ML
     Route: 042
     Dates: start: 20250920
  18. HUMAN RED BLOOD CELL [Concomitant]
     Active Substance: HUMAN RED BLOOD CELL
     Dosage: BLOOD TRANSFUSION OF SZP O(I) RHESUS POS. 120 ML
     Route: 042
     Dates: start: 20250921
  19. HUMAN RED BLOOD CELL [Concomitant]
     Active Substance: HUMAN RED BLOOD CELL
     Dosage: BLOOD TRANSFUSION OF SZP O(I) RHESUS POS. 120 ML
     Route: 042
     Dates: start: 20250922
  20. HUMAN RED BLOOD CELL [Concomitant]
     Active Substance: HUMAN RED BLOOD CELL
     Dosage: BLOOD TRANSFUSION OF SZP O(I) RHESUS POS. 120 ML
     Route: 042
     Dates: start: 20250923
  21. HUMAN RED BLOOD CELL [Concomitant]
     Active Substance: HUMAN RED BLOOD CELL
     Dosage: HEMOTRANSFUSION OF ER MASS O(I) RHESUS WAS PERFORMED POS. 120 ML
     Route: 042
     Dates: start: 20250926
  22. HUMAN RED BLOOD CELL [Concomitant]
     Active Substance: HUMAN RED BLOOD CELL
     Dosage: HEMOTRANSFUSION OF ER MASS O(I) RHESUS POS. 120 ML
     Route: 042
     Dates: start: 20250930
  23. HUMAN RED BLOOD CELL [Concomitant]
     Active Substance: HUMAN RED BLOOD CELL
     Dosage: HEMOTRANSFUSION OF SZP O(I) RHESUS WAS PERFORMED 120 ML
     Route: 042
     Dates: start: 20251003
  24. HUMAN RED BLOOD CELL [Concomitant]
     Active Substance: HUMAN RED BLOOD CELL
     Dosage: HEMOTRANSFUSION OF SZP O(I) RHESUS POS. 120 M
     Route: 042
     Dates: start: 20251007
  25. UNSPECIFIED INGREDIENT [Concomitant]
     Active Substance: UNSPECIFIED INGREDIENT
     Indication: Product used for unknown indication
     Dosage: 360 MILLIGRAM, BID
     Route: 065
     Dates: start: 20250902
  26. TRANEXAMIC ACID [Concomitant]
     Active Substance: TRANEXAMIC ACID
     Indication: Product used for unknown indication
     Dosage: UNK
     Route: 065
     Dates: start: 20250902
  27. OMEPRAZOLE [Concomitant]
     Active Substance: OMEPRAZOLE
     Indication: Product used for unknown indication
     Dosage: UNK
     Route: 065
     Dates: start: 20250902
  28. AMIKACIN [Concomitant]
     Active Substance: AMIKACIN
     Indication: Product used for unknown indication
     Dosage: UNK
     Route: 065
     Dates: start: 20250904
  29. UNSPECIFIED INGREDIENT [Concomitant]
     Active Substance: UNSPECIFIED INGREDIENT
     Indication: Product used for unknown indication
     Dosage: UNK
     Route: 065
     Dates: start: 20250904
  30. SPIRONOLACTONE [Concomitant]
     Active Substance: SPIRONOLACTONE
     Indication: Product used for unknown indication
     Dosage: UNK
     Route: 065
     Dates: start: 20250904
  31. CARVEDILOL [Concomitant]
     Active Substance: CARVEDILOL
     Indication: Product used for unknown indication
     Dosage: UNK
     Route: 065
     Dates: start: 20250904
  32. URSODIOL [Concomitant]
     Active Substance: URSODIOL
     Indication: Product used for unknown indication
     Dosage: UNK
     Route: 065
     Dates: start: 20250904
  33. FUROSEMIDE [Concomitant]
     Active Substance: FUROSEMIDE
     Indication: Product used for unknown indication
     Dosage: UNK
     Route: 065
     Dates: start: 20250904
  34. ALBUMIN HUMAN [Concomitant]
     Active Substance: ALBUMIN HUMAN
     Indication: Product used for unknown indication
     Dosage: 60 MILLILITER (FEEDING NYTRILON MALABSORPTION)
     Route: 065
     Dates: start: 20250904
  35. MEROPENEM [Concomitant]
     Active Substance: MEROPENEM
     Indication: Product used for unknown indication
     Dosage: 240 MILLIGRAM, TID
     Route: 065
     Dates: start: 20250918
  36. FLUCONAZOLE [Concomitant]
     Active Substance: FLUCONAZOLE
     Indication: Product used for unknown indication
     Dosage: UNK
     Route: 065
  37. PLATELETS [Concomitant]
     Active Substance: HUMAN PLATELET, ALLOGENIC
     Indication: Transfusion
     Dosage: O(I) WAS PERFORMED RHESUS POS. 130 ML
     Route: 042
     Dates: start: 20250908
  38. PLATELETS [Concomitant]
     Active Substance: HUMAN PLATELET, ALLOGENIC
     Dosage: PLATELET TRANSFUSION (APHERESIS) RHESUS POS. 129 ML
     Route: 042
     Dates: start: 20250912
  39. PLATELETS [Concomitant]
     Active Substance: HUMAN PLATELET, ALLOGENIC
     Dosage: 131 MILLILITER
     Route: 042
     Dates: start: 20250915
  40. PLATELETS [Concomitant]
     Active Substance: HUMAN PLATELET, ALLOGENIC
     Dosage: 130 MILLILITER
     Route: 042
     Dates: start: 20250920
  41. FIBRYGA [Concomitant]
     Active Substance: FIBRINOGEN HUMAN
     Indication: Product used for unknown indication
     Dosage: 400 MILLIGRAM
     Route: 065
     Dates: start: 20250911
  42. OXYGEN [Concomitant]
     Active Substance: OXYGEN
     Indication: Product used for unknown indication
     Dosage: OXYGEN FLOW OF 3-4 L PER MIN
     Route: 045
     Dates: start: 20250922

REACTIONS (7)
  - Viral cardiomyopathy [Fatal]
  - Hepatic failure [Fatal]
  - Condition aggravated [Fatal]
  - Coagulopathy [Fatal]
  - Gastric haemorrhage [Fatal]
  - Thrombocytopenia [Fatal]
  - Pulmonary haemorrhage [Fatal]

NARRATIVE: CASE EVENT DATE: 20250101
